FAERS Safety Report 7509793-8 (Version None)
Quarter: 2011Q2

REPORT INFORMATION
  Report Type: 
  Country: None (occurrence: None)
  Receive Date: 20110519
  Receipt Date: 20110505
  Transmission Date: 20111010
  Serious: Yes (Hospitalization, Other)
  Sender: FDA-Public Use
  Company Number: 2011MA005448

PATIENT
  Age: 37 Year
  Sex: Male

DRUGS (1)
  1. TRAMADOL HYDROCHLORIDE [Suspect]

REACTIONS (20)
  - TREMOR [None]
  - HYPERHIDROSIS [None]
  - MUSCULOSKELETAL STIFFNESS [None]
  - ANXIETY [None]
  - FEELING ABNORMAL [None]
  - NAUSEA [None]
  - SNEEZING [None]
  - PAIN [None]
  - EUPHORIC MOOD [None]
  - SLEEP DISORDER [None]
  - FATIGUE [None]
  - HEADACHE [None]
  - MALAISE [None]
  - DRUG DEPENDENCE [None]
  - RESTLESSNESS [None]
  - RHINORRHOEA [None]
  - DRUG ABUSE [None]
  - ABNORMAL BEHAVIOUR [None]
  - DRUG WITHDRAWAL SYNDROME [None]
  - YAWNING [None]
